FAERS Safety Report 12598391 (Version 2)
Quarter: 2016Q3

REPORT INFORMATION
  Report Type: Report from Study
  Country: US (occurrence: US)
  Receive Date: 20160727
  Receipt Date: 20160802
  Transmission Date: 20161109
  Serious: Yes (Hospitalization, Other)
  Sender: FDA-Public Use
  Company Number: US-GILEAD-2016-0221729

PATIENT
  Age: 71 Year
  Sex: Female
  Weight: 61.22 kg

DRUGS (18)
  1. NASONEX [Concomitant]
     Active Substance: MOMETASONE FUROATE
  2. POTASSIUM [Concomitant]
     Active Substance: POTASSIUM
  3. ZYRTEC [Concomitant]
     Active Substance: CETIRIZINE HYDROCHLORIDE
  4. AMBRISENTAN [Suspect]
     Active Substance: AMBRISENTAN
     Indication: SCLERODERMA
  5. CARAFATE [Concomitant]
     Active Substance: SUCRALFATE
  6. PANTOPRAZOLE [Concomitant]
     Active Substance: PANTOPRAZOLE SODIUM
  7. TYVASO [Concomitant]
     Active Substance: TREPROSTINIL
  8. FUROSEMIDE. [Concomitant]
     Active Substance: FUROSEMIDE
  9. PROAIR HFA [Concomitant]
     Active Substance: ALBUTEROL SULFATE
  10. ADCIRCA [Concomitant]
     Active Substance: TADALAFIL
  11. ZANTAC [Concomitant]
     Active Substance: RANITIDINE HYDROCHLORIDE
  12. FROVA [Concomitant]
     Active Substance: FROVATRIPTAN SUCCINATE
  13. AMBRISENTAN [Suspect]
     Active Substance: AMBRISENTAN
     Indication: PULMONARY ARTERIAL HYPERTENSION
     Dosage: 5 MG, QD
     Route: 065
     Dates: start: 20150120
  14. PROAIR HFA [Concomitant]
     Active Substance: ALBUTEROL SULFATE
  15. CALCIUM +D3 [Concomitant]
     Active Substance: CALCIUM\CHOLECALCIFEROL
  16. ZYRTEC [Concomitant]
     Active Substance: CETIRIZINE HYDROCHLORIDE
  17. ASPIRIN                            /00002701/ [Concomitant]
     Active Substance: ASPIRIN
  18. SPIRONOLACTONE. [Concomitant]
     Active Substance: SPIRONOLACTONE

REACTIONS (2)
  - Dyspnoea [Unknown]
  - Bronchitis [Unknown]

NARRATIVE: CASE EVENT DATE: 20160515
